FAERS Safety Report 15493527 (Version 1)
Quarter: 2018Q4

REPORT INFORMATION
  Report Type: Spontaneous
  Country: US (occurrence: US)
  Receive Date: 20181012
  Receipt Date: 20181012
  Transmission Date: 20190205
  Serious: Yes (Hospitalization)
  Sender: FDA-Public Use
  Company Number: None

PATIENT
  Sex: Female

DRUGS (5)
  1. DIURIL [Concomitant]
     Active Substance: CHLOROTHIAZIDE
  2. SENNA [Concomitant]
     Active Substance: SENNA LEAF\SENNOSIDES\SENNOSIDES A AND B
  3. FIRST-OMEPRA SUS [Concomitant]
  4. REVATIO [Suspect]
     Active Substance: SILDENAFIL CITRATE
     Indication: ATRIAL SEPTAL DEFECT
     Dosage: ?          OTHER ROUTE:G-TUBE?
     Dates: start: 20180620
  5. LEVOTHYROXIN [Concomitant]
     Active Substance: LEVOTHYROXINE

REACTIONS (1)
  - Therapy change [None]
